FAERS Safety Report 6528735-5 (Version None)
Quarter: 2009Q4

REPORT INFORMATION
  Report Type: 
  Country: None (occurrence: None)
  Receive Date: 20091224
  Receipt Date: 20091215
  Transmission Date: 20100525
  Serious: Yes (Other)
  Sender: FDA-Public Use
  Company Number: 2009SP038238

PATIENT
  Age: 34 Year
  Sex: Female

DRUGS (5)
  1. IMPLANON [Suspect]
     Indication: DRUG USE FOR UNKNOWN INDICATION
     Dosage: SBDE
     Dates: start: 20091013, end: 20091118
  2. ZYRTEC [Concomitant]
  3. SINGULAIR [Concomitant]
  4. METFORMIN HYDROCHLORIDE [Concomitant]
  5. HYDROCHLOROTHIAZIDE [Concomitant]

REACTIONS (4)
  - AGITATION [None]
  - CRYING [None]
  - PARANOIA [None]
  - PSYCHOTIC DISORDER [None]
